FAERS Safety Report 10593734 (Version 1)
Quarter: 2014Q4

REPORT INFORMATION
  Report Type: Spontaneous
  Country: ES (occurrence: ES)
  Receive Date: 20141119
  Receipt Date: 20141119
  Transmission Date: 20150529
  Serious: Yes (Death, Hospitalization)
  Sender: FDA-Public Use
  Company Number: ES-ABBVIE-14P-144-1310081-00

PATIENT
  Age: 85 Year
  Sex: Female

DRUGS (1)
  1. DEPAKINE [Suspect]
     Active Substance: VALPROATE SODIUM
     Indication: EPILEPSY
     Route: 048
     Dates: start: 20140515, end: 20140802

REACTIONS (1)
  - Hyponatraemia [Fatal]

NARRATIVE: CASE EVENT DATE: 20140729
